FAERS Safety Report 26094788 (Version 1)
Quarter: 2025Q4

REPORT INFORMATION
  Report Type: Spontaneous
  Country: AU (occurrence: AU)
  Receive Date: 20251126
  Receipt Date: 20251126
  Transmission Date: 20260117
  Serious: Yes (Hospitalization)
  Sender: MERCK SHARP & DOHME LLC
  Company Number: AU-009507513-2352381

PATIENT
  Age: 81 Year
  Sex: Male

DRUGS (12)
  1. DAPTOMYCIN [Suspect]
     Active Substance: DAPTOMYCIN
     Dates: end: 202504
  2. THIAMINE HYDROCHLORIDE [Concomitant]
     Active Substance: THIAMINE HYDROCHLORIDE
  3. MELATONIN [Concomitant]
     Active Substance: MELATONIN
  4. Panamax [Concomitant]
  5. PANTOPRAZOLE SODIUM [Concomitant]
     Active Substance: PANTOPRAZOLE SODIUM
  6. FUROSEMIDE [Concomitant]
     Active Substance: FUROSEMIDE
  7. HEPARIN SODIUM [Concomitant]
     Active Substance: HEPARIN SODIUM
  8. IRBESARTAN [Concomitant]
     Active Substance: IRBESARTAN
  9. LATANOPROST [Concomitant]
     Active Substance: LATANOPROST
  10. MEROPENEM [Concomitant]
     Active Substance: MEROPENEM
  11. NYSTATIN [Concomitant]
     Active Substance: NYSTATIN
  12. SODIUM BICARBONATE [Concomitant]
     Active Substance: SODIUM BICARBONATE

REACTIONS (4)
  - C-reactive protein increased [Recovered/Resolved]
  - Eosinophilic pneumonia [Recovered/Resolved]
  - Liver function test increased [Recovered/Resolved]
  - Eosinophil count increased [Recovered/Resolved]

NARRATIVE: CASE EVENT DATE: 20250404
